FAERS Safety Report 15273825 (Version 2)
Quarter: 2018Q4

REPORT INFORMATION
  Report Type: Report from Study
  Country: JP (occurrence: JP)
  Receive Date: 20180813
  Receipt Date: 20181012
  Transmission Date: 20190204
  Serious: Yes (Other)
  Sender: FDA-Public Use
  Company Number: JP-UCBSA-2018035065

PATIENT
  Age: 17 Year
  Sex: Male
  Weight: 38 kg

DRUGS (9)
  1. LACOSAMIDE. [Suspect]
     Active Substance: LACOSAMIDE
     Dosage: 50 MG, 2X/DAY (BID)
     Route: 048
     Dates: start: 20180412, end: 20180509
  2. LACOSAMIDE. [Suspect]
     Active Substance: LACOSAMIDE
     Dosage: 25 MG, 2X/DAY (BID)
     Route: 048
     Dates: start: 20180510, end: 20180606
  3. LAMICTAL [Concomitant]
     Active Substance: LAMOTRIGINE
     Indication: FOCAL DYSCOGNITIVE SEIZURES
     Route: 048
  4. LACOSAMIDE. [Suspect]
     Active Substance: LACOSAMIDE
     Indication: FOCAL DYSCOGNITIVE SEIZURES
     Dosage: 25 MG, 2X/DAY (BID)
     Route: 048
     Dates: start: 20180315, end: 20180411
  5. ANNACA [Concomitant]
     Indication: PRODUCT USED FOR UNKNOWN INDICATION
     Route: 048
  6. MAGNESIUM OXIDE. [Concomitant]
     Active Substance: MAGNESIUM OXIDE
     Indication: PRODUCT USED FOR UNKNOWN INDICATION
     Route: 048
  7. ROZEREM [Concomitant]
     Active Substance: RAMELTEON
     Indication: PRODUCT USED FOR UNKNOWN INDICATION
     Route: 048
  8. TEGRETOL [Suspect]
     Active Substance: CARBAMAZEPINE
     Indication: FOCAL DYSCOGNITIVE SEIZURES
     Dosage: 200 MG DAILY
     Route: 048
  9. MYSTAN [Suspect]
     Active Substance: CLOBAZAM
     Indication: FOCAL DYSCOGNITIVE SEIZURES
     Dosage: 12 MG DAILY
     Route: 048

REACTIONS (4)
  - Somnolence [Recovering/Resolving]
  - Salivary hypersecretion [Recovering/Resolving]
  - Off label use [Unknown]
  - Epilepsy [Recovering/Resolving]

NARRATIVE: CASE EVENT DATE: 20180315
